FAERS Safety Report 9199151 (Version 1)
Quarter: 2013Q1

REPORT INFORMATION
  Report Type: Spontaneous
  Country: US (occurrence: US)
  Receive Date: 20130329
  Receipt Date: 20130329
  Transmission Date: 20140127
  Serious: No
  Sender: FDA-Public Use
  Company Number: US-009507513-1303USA012594

PATIENT
  Age: 19 Year
  Sex: Female
  Weight: 45.35 kg

DRUGS (1)
  1. IMPLANON [Suspect]
     Indication: CONTRACEPTION
     Dosage: 1 DF, UNK
     Dates: start: 20130213

REACTIONS (2)
  - Menorrhagia [Unknown]
  - Menstrual disorder [Unknown]
